FAERS Safety Report 7801723-4 (Version None)
Quarter: 2011Q4

REPORT INFORMATION
  Report Type: 
  Country: None (occurrence: None)
  Receive Date: 20111007
  Receipt Date: 20111004
  Transmission Date: 20120403
  Serious: Yes (Life-Threatening, Hospitalization)
  Sender: FDA-Public Use
  Company Number: DE-SANOFI-AVENTIS-2011SA039052

PATIENT
  Age: 60 Year
  Sex: Female
  Weight: 78 kg

DRUGS (8)
  1. FLUOROURACIL [Concomitant]
     Indication: SQUAMOUS CELL CARCINOMA
     Route: 041
     Dates: start: 20100901, end: 20100901
  2. LEUCOVORIN CALCIUM [Concomitant]
     Route: 041
     Dates: start: 20110428, end: 20110428
  3. LEUCOVORIN CALCIUM [Concomitant]
     Indication: SQUAMOUS CELL CARCINOMA
     Route: 041
     Dates: start: 20100901, end: 20100901
  4. OXALIPLATIN [Suspect]
     Route: 041
     Dates: start: 20110428, end: 20110428
  5. FLUOROURACIL [Concomitant]
     Route: 041
     Dates: start: 20110428, end: 20110428
  6. OXALIPLATIN [Suspect]
     Route: 041
     Dates: start: 20110428, end: 20110428
  7. OXALIPLATIN [Suspect]
     Route: 041
     Dates: start: 20100924, end: 20100924
  8. OXALIPLATIN [Suspect]
     Indication: SQUAMOUS CELL CARCINOMA
     Route: 041
     Dates: start: 20100924, end: 20100924

REACTIONS (4)
  - RENAL FAILURE ACUTE [None]
  - PANCREATITIS [None]
  - COOMBS POSITIVE HAEMOLYTIC ANAEMIA [None]
  - MULTI-ORGAN FAILURE [None]
